FAERS Safety Report 5845190-9 (Version None)
Quarter: 2008Q3

REPORT INFORMATION
  Report Type: 
  Country: None (occurrence: None)
  Receive Date: 20080814
  Receipt Date: 20080811
  Transmission Date: 20090109
  Serious: Yes (Life-Threatening, Other)
  Sender: FDA-Public Use
  Company Number: GB-WYE-G01988908

PATIENT
  Sex: Female

DRUGS (1)
  1. TACROLIMUS [Suspect]
     Dosage: UNKNOWN

REACTIONS (1)
  - KAPOSI'S SARCOMA [None]
